FAERS Safety Report 10041607 (Version 4)
Quarter: 2014Q4

REPORT INFORMATION
  Report Type: Report from Study
  Country: US (occurrence: US)
  Receive Date: 20140327
  Receipt Date: 20141211
  Transmission Date: 20150528
  Serious: Yes (Other)
  Sender: FDA-Public Use
  Company Number: US-GILEAD-2014-0097252

PATIENT

DRUGS (5)
  1. LAMIVUDINE. [Suspect]
     Active Substance: LAMIVUDINE
     Indication: HIV INFECTION
     Dosage: 100 MG, UNK
     Route: 048
     Dates: start: 20120524, end: 20130228
  2. TENOFOVIR DISOPROXIL FUMARATE [Suspect]
     Active Substance: TENOFOVIR DISOPROXIL FUMARATE
     Indication: HIV INFECTION
     Dosage: 300 MG, UNK
     Route: 048
     Dates: start: 20120524, end: 20130228
  3. SUSTIVA [Suspect]
     Active Substance: EFAVIRENZ
     Indication: HIV INFECTION
     Dosage: 60 MG, UNK
     Route: 048
     Dates: start: 20120524, end: 20130228
  4. LAMIVUDINE. [Suspect]
     Active Substance: LAMIVUDINE
  5. LAMIVUDINE. [Suspect]
     Active Substance: LAMIVUDINE

REACTIONS (4)
  - Delayed delivery [Unknown]
  - Pregnancy [Recovered/Resolved]
  - Amniotic cavity infection [Unknown]
  - Delayed delivery [Recovered/Resolved]

NARRATIVE: CASE EVENT DATE: 20130125
